FAERS Safety Report 5410602-1 (Version None)
Quarter: 2007Q3

REPORT INFORMATION
  Report Type: 
  Country: None (occurrence: None)
  Receive Date: 20070810
  Receipt Date: 20070416
  Transmission Date: 20080115
  Serious: No
  Sender: FDA-Public Use
  Company Number: A0645979A

PATIENT
  Age: 78 Year
  Sex: Female

DRUGS (7)
  1. PAROXETINE HYDROCHLORIDE [Suspect]
     Indication: DEPRESSION
     Dosage: 20MG PER DAY
     Route: 048
  2. MULTI-VITAMIN [Concomitant]
  3. CALCIUM CHLORIDE [Concomitant]
  4. FISH OIL [Concomitant]
  5. VITAMIN B [Concomitant]
  6. EYE DROPS [Concomitant]
  7. ALBUTEROL [Concomitant]

REACTIONS (3)
  - DYSPEPSIA [None]
  - NAUSEA [None]
  - VOMITING [None]
